FAERS Safety Report 22751868 (Version 2)
Quarter: 2024Q2

REPORT INFORMATION
  Report Type: Spontaneous
  Country: IT (occurrence: IT)
  Receive Date: 20230726
  Receipt Date: 20240408
  Transmission Date: 20240716
  Serious: Yes (Hospitalization, Other)
  Sender: FDA-Public Use
  Company Number: IT-ROCHE-2030431

PATIENT
  Age: 82 Year
  Sex: Female

DRUGS (25)
  1. PACLITAXEL [Suspect]
     Active Substance: PACLITAXEL
     Indication: Breast cancer
     Dosage: MOST RECENT DOSE PRIOR TO EVENT: 24/OCT/2017, TOTAL DOSE: 800 MG (DUE TO DIFFERENT UNITS IN THERAPY
     Route: 042
     Dates: start: 20170905, end: 20171024
  2. PACLITAXEL [Suspect]
     Active Substance: PACLITAXEL
     Indication: Breast cancer metastatic
     Dosage: 90 MILLIGRAM, EVERY WEEK (100 MILLIGRAM, QWK; MOST RECENT DOSE PRIOR TO THE EVENT: 10/NOV/2017)
     Route: 042
     Dates: start: 20171110, end: 20180119
  3. LETROZOLE [Suspect]
     Active Substance: LETROZOLE
     Indication: Breast cancer metastatic
     Dosage: 2.5 MILLIGRAM, ONCE A DAY
     Route: 048
     Dates: start: 20180125, end: 20190418
  4. PERTUZUMAB [Suspect]
     Active Substance: PERTUZUMAB
     Indication: Breast cancer
     Dosage: 840 MILLIGRAM (3 WEEKS)MOST RECENT DOSE PRIOR TO THE EVENT: 27/SEP/2017
     Route: 042
     Dates: start: 20170905, end: 20170905
  5. PERTUZUMAB [Suspect]
     Active Substance: PERTUZUMAB
     Indication: Breast cancer metastatic
     Dosage: 840 MILLIGRAM (3 WEEKS)840 MILLIGRAM, Q3WK; MOST RECENT DOSE PRIOR TO THE EVENT: 27/SEP/2017
     Route: 042
     Dates: start: 20170927, end: 20180419
  6. TRASTUZUMAB [Suspect]
     Active Substance: TRASTUZUMAB
     Indication: Breast cancer
     Dosage: 480 MILLIGRAM (3 WEEKS) MOST RECENT DOSE PRIOR TO THE EVENT: 27/SEP/2017
     Route: 042
     Dates: start: 20170905, end: 20170905
  7. TRASTUZUMAB [Suspect]
     Active Substance: TRASTUZUMAB
     Indication: Breast cancer metastatic
     Dosage: 360 MILLIGRAM (3 WEEKS)
     Route: 042
     Dates: start: 20170927, end: 20180419
  8. TRASTUZUMAB [Suspect]
     Active Substance: TRASTUZUMAB
     Dosage: 270 MILLIGRAM (3 WEEKS)
     Route: 042
     Dates: start: 20190410, end: 20190410
  9. CAPECITABINE [Suspect]
     Active Substance: CAPECITABINE
     Indication: Breast cancer metastatic
     Dosage: 500 MILLIGRAM, ONCE A DAY, PERSISTENT 1 DAYS
     Route: 048
     Dates: start: 20190410, end: 20190418
  10. TAPAZOLE [Concomitant]
     Active Substance: METHIMAZOLE
     Indication: Product used for unknown indication
     Dosage: UNK
     Route: 065
  11. RANITIDINE [Concomitant]
     Active Substance: RANITIDINE
     Indication: Product used for unknown indication
     Dosage: UNK
     Route: 065
     Dates: start: 20171129, end: 20180419
  12. CHOLECALCIFEROL [Concomitant]
     Active Substance: CHOLECALCIFEROL
     Indication: Product used for unknown indication
     Dosage: UNK
     Route: 065
  13. ZOFRAN [Concomitant]
     Active Substance: ONDANSETRON HYDROCHLORIDE
     Indication: Product used for unknown indication
     Dosage: UNK
     Route: 065
     Dates: start: 20171010, end: 20180419
  14. LEVETIRACETAM [Concomitant]
     Active Substance: LEVETIRACETAM
     Indication: Product used for unknown indication
     Dosage: UNK
     Route: 065
  15. METFORMIN [Concomitant]
     Active Substance: METFORMIN HYDROCHLORIDE
     Indication: Product used for unknown indication
     Dosage: UNK
     Route: 065
  16. DEXAMETHASONE [Concomitant]
     Active Substance: DEXAMETHASONE
     Indication: Product used for unknown indication
     Dosage: UNK
     Route: 065
     Dates: start: 20171010, end: 20180119
  17. COUMADIN [Concomitant]
     Active Substance: WARFARIN SODIUM
     Indication: Product used for unknown indication
     Dosage: UNK
     Route: 065
  18. FLECAINIDE [Concomitant]
     Active Substance: FLECAINIDE
     Indication: Product used for unknown indication
     Dosage: UNK
     Route: 065
  19. BISOPROLOL [Concomitant]
     Active Substance: BISOPROLOL\BISOPROLOL FUMARATE
     Indication: Product used for unknown indication
     Dosage: UNK
     Route: 065
  20. POTASSIUM CHLORIDE [Concomitant]
     Active Substance: POTASSIUM CHLORIDE
     Indication: Product used for unknown indication
     Dosage: UNK
     Route: 065
     Dates: end: 20180609
  21. PREDNISONE [Concomitant]
     Active Substance: PREDNISONE
     Indication: Product used for unknown indication
     Dosage: UNK
     Route: 065
     Dates: start: 20180430
  22. CHLORPHENIRAMINE MALEATE [Concomitant]
     Active Substance: CHLORPHENIRAMINE MALEATE
     Indication: Product used for unknown indication
     Dosage: UNK
     Route: 065
     Dates: start: 20171010, end: 20190419
  23. ATORVASTATIN [Concomitant]
     Active Substance: ATORVASTATIN
     Indication: Product used for unknown indication
     Dosage: UNK
     Route: 065
     Dates: start: 20180516
  24. LANSOPRAZOLE [Concomitant]
     Active Substance: LANSOPRAZOLE
     Indication: Product used for unknown indication
     Dosage: ONGOING = CHECKED
     Route: 065
     Dates: start: 20180430
  25. FUROSEMIDE [Concomitant]
     Active Substance: FUROSEMIDE
     Indication: Product used for unknown indication
     Dosage: 25 MILLIGRAM
     Route: 048
     Dates: start: 20190410, end: 20190418

REACTIONS (3)
  - Decreased appetite [Recovered/Resolved]
  - Asthenia [Recovered/Resolved]
  - Neuropathy peripheral [Recovered/Resolved]

NARRATIVE: CASE EVENT DATE: 20171102
